FAERS Safety Report 18508079 (Version 2)
Quarter: 2020Q4

REPORT INFORMATION
  Report Type: Report from Study
  Country: JP (occurrence: JP)
  Receive Date: 20201116
  Receipt Date: 20201124
  Transmission Date: 20210114
  Serious: Yes (Death, Hospitalization, Other)
  Sender: FDA-Public Use
  Company Number: JP-PFIZER INC-2020-07178

PATIENT
  Age: 69 Year
  Sex: Female

DRUGS (6)
  1. MEKTOVI [Suspect]
     Active Substance: BINIMETINIB
     Indication: MALIGNANT MELANOMA
     Dosage: 90 MG (90 MG, EVERYDAY)
     Route: 048
     Dates: start: 20191225, end: 20200106
  2. BRAFTOVI [Suspect]
     Active Substance: ENCORAFENIB
     Dosage: 450 MG (450 MG, EVERYDAY)
     Route: 048
     Dates: start: 20200321, end: 20200731
  3. BRAFTOVI [Suspect]
     Active Substance: ENCORAFENIB
     Indication: MALIGNANT MELANOMA
     Dosage: 450 MG (450 MG, EVERYDAY)
     Route: 048
     Dates: start: 20191225, end: 20200106
  4. BRAFTOVI [Suspect]
     Active Substance: ENCORAFENIB
     Dosage: 450 MG (450 MG, EVERYDAY)
     Route: 048
     Dates: start: 20200111, end: 20200309
  5. MEKTOVI [Suspect]
     Active Substance: BINIMETINIB
     Dosage: 90 MG (90 MG, EVERYDAY)
     Route: 048
     Dates: start: 20200111, end: 20200309
  6. MEKTOVI [Suspect]
     Active Substance: BINIMETINIB
     Dosage: 90 MG (90 MG, EVERYDAY)
     Route: 048
     Dates: start: 20200321, end: 20200731

REACTIONS (4)
  - Vomiting [Not Recovered/Not Resolved]
  - Eye disorder [Recovered/Resolved]
  - Hepatic function abnormal [Recovered/Resolved]
  - Helicobacter infection [Unknown]

NARRATIVE: CASE EVENT DATE: 20191227
